FAERS Safety Report 8152979-2 (Version None)
Quarter: 2012Q1

REPORT INFORMATION
  Report Type: 
  Country: None (occurrence: None)
  Receive Date: 20120221
  Receipt Date: 20120209
  Transmission Date: 20120608
  Serious: Yes (Hospitalization)
  Sender: FDA-Public Use
  Company Number: US-UCBSA-044843

PATIENT
  Age: 26 Year
  Sex: Female
  Weight: 49.9 kg

DRUGS (40)
  1. PREDNISONE [Concomitant]
     Dosage: DAILY DOSE: 60 MG
     Route: 048
     Dates: start: 20110601
  2. PREDNISONE [Concomitant]
     Dosage: DAILY DOSE: 10 MG
     Route: 048
     Dates: start: 20110609
  3. PREDNISONE [Concomitant]
     Dosage: DAILY DOSE: 50 MG
     Route: 048
     Dates: start: 20110414, end: 20110427
  4. PREDNISONE [Concomitant]
     Dosage: DAILY DOSE: 60 MG
     Route: 048
     Dates: start: 20110331, end: 20110413
  5. AUGMENTIN '125' [Concomitant]
     Indication: CROHN'S DISEASE
     Dates: start: 20110603, end: 20110613
  6. ACYCLOVIR [Concomitant]
     Indication: CROHN'S DISEASE
     Dates: start: 20110513, end: 20110628
  7. ASACOL [Concomitant]
     Indication: CROHN'S DISEASE
     Dates: start: 19991105
  8. ASACOL [Concomitant]
  9. CIPROFLOXACIN [Concomitant]
     Indication: CROHN'S DISEASE
     Dates: start: 20100706
  10. PREDNISONE [Concomitant]
     Dosage: DAILY DOSE: 25 MG
     Route: 048
     Dates: start: 20110512, end: 20110525
  11. KEFLEX [Concomitant]
     Dates: start: 20110614, end: 20110621
  12. DIPHENOXYLATE HCL + ATROPINE SULFATE [Concomitant]
     Indication: CROHN'S DISEASE
  13. PANTOPRAZOLE [Concomitant]
     Route: 048
  14. OMEPRAZOLE [Concomitant]
     Route: 048
  15. FOL CAPS OMEGA 3 [Concomitant]
  16. PREDNISONE [Concomitant]
     Route: 042
     Dates: start: 20110601, end: 20110601
  17. PREDNISONE [Concomitant]
     Dates: start: 20070101, end: 20070101
  18. PREDNISONE [Concomitant]
     Dates: start: 20040101, end: 20040101
  19. AUGMENTIN '125' [Concomitant]
     Dates: start: 20111008, end: 20111019
  20. PREPARATION H [Concomitant]
     Dosage: 4 TIMES AS NEEDED
  21. PREDNISONE [Concomitant]
     Dosage: DAILY DOSE: 20 MG
     Route: 048
     Dates: start: 20110526, end: 20110608
  22. PREDNISONE [Concomitant]
     Dates: start: 20081111
  23. PREDNISONE [Concomitant]
     Dates: start: 20020101, end: 20020101
  24. NYSTATIN [Concomitant]
     Dosage: FOUR TIMES DAILY
  25. CIMZIA [Suspect]
     Route: 058
     Dates: start: 20100304, end: 20100404
  26. PREDNISONE [Concomitant]
     Dosage: 60 MG
     Dates: end: 20110601
  27. MACROBID [Concomitant]
     Indication: CROHN'S DISEASE
     Dates: start: 20110603, end: 20111004
  28. OXYCODONE HCL [Concomitant]
     Indication: PAIN
     Dosage: ONE TABLET EVERY FOUR TO SIX HOURS
  29. ALBUTEROL [Concomitant]
  30. CIMZIA [Suspect]
     Indication: CROHN'S DISEASE
     Route: 058
     Dates: start: 20100718
  31. PROMETHAZINE [Concomitant]
     Indication: NAUSEA
     Dosage: 25MG BID PRN
     Route: 048
  32. CIMZIA [Suspect]
     Route: 058
     Dates: start: 20100504, end: 20100704
  33. PREDNISONE [Concomitant]
     Indication: CROHN'S DISEASE
     Dosage: DAILY DOSE: 40 MG
     Dates: start: 20110801
  34. KEFLEX [Concomitant]
     Indication: CROHN'S DISEASE
     Dates: start: 20110811, end: 20110823
  35. ZOLOFT [Concomitant]
     Dosage: DAILY DOSE:50 MG
     Route: 048
  36. PREDNISONE [Concomitant]
     Dosage: DAILY DOSE: 40 MG
     Route: 048
     Dates: start: 20110428, end: 20110511
  37. IMODIUM [Concomitant]
     Indication: CROHN'S DISEASE
  38. PERIDEX [Concomitant]
     Dosage: THREE TIMES DAILY
  39. MULTI-VITAMINS [Concomitant]
  40. LOMOTIL [Concomitant]
     Indication: DIARRHOEA
     Dosage: 2.5-0.025MG TABS, TAKE ONE TID PRN
     Route: 048

REACTIONS (6)
  - URINARY TRACT INFECTION [None]
  - CROHN'S DISEASE [None]
  - DIARRHOEA [None]
  - PREGNANCY [None]
  - PREMATURE DELIVERY [None]
  - PYELONEPHRITIS [None]
